FAERS Safety Report 7236059-6 (Version None)
Quarter: 2011Q1

REPORT INFORMATION
  Report Type: 
  Country: None (occurrence: None)
  Receive Date: 20110111
  Receipt Date: 20110102
  Transmission Date: 20110831
  Serious: Yes (Other)
  Sender: FDA-Public Use
  Company Number: 1000018052

PATIENT
  Sex: Male

DRUGS (1)
  1. CITALOPRAM HYDROBROMIDE [Suspect]

REACTIONS (5)
  - DYSPNOEA [None]
  - INSOMNIA [None]
  - CHOKING [None]
  - HEADACHE [None]
  - NAUSEA [None]
